FAERS Safety Report 7829961-5 (Version None)
Quarter: 2011Q4

REPORT INFORMATION
  Report Type: 
  Country: None (occurrence: None)
  Receive Date: 20111021
  Receipt Date: 20110930
  Transmission Date: 20120403
  Serious: Yes (Hospitalization, Other)
  Sender: FDA-Public Use
  Company Number: US-BAYER-2011-005077

PATIENT
  Age: 20 Year
  Sex: Female
  Weight: 52.5 kg

DRUGS (8)
  1. YASMIN [Suspect]
     Indication: MIGRAINE
  2. ZYRTEC [Concomitant]
     Dosage: UNK UNK, QD
  3. YAZ [Suspect]
     Indication: ACNE
     Dosage: UNK
     Dates: start: 20080801, end: 20090501
  4. YAZ [Suspect]
     Indication: MIGRAINE
  5. ALLEGRA D 24 HOUR [Concomitant]
     Dosage: 60 MG, UNK
     Route: 048
  6. ZOMIG [Concomitant]
     Dosage: 2.5 MG, UNK
     Route: 048
  7. YASMIN [Suspect]
     Indication: ACNE
     Dosage: UNK
     Dates: start: 20060801, end: 20080801
  8. MIDRIN [Concomitant]
     Route: 048

REACTIONS (6)
  - BILE DUCT STONE [None]
  - PAIN [None]
  - GALLBLADDER DISORDER [None]
  - POST CHOLECYSTECTOMY SYNDROME [None]
  - CHOLECYSTITIS CHRONIC [None]
  - EMOTIONAL DISTRESS [None]
